FAERS Safety Report 4282327-X (Version None)
Quarter: 2004Q1

REPORT INFORMATION
  Report Type: 
  Country: None (occurrence: None)
  Receive Date: 20040112
  Receipt Date: 20030922
  Transmission Date: 20041129
  Serious: Yes (Death)
  Sender: FDA-Public Use
  Company Number: 347685

PATIENT
  Age: 34 Year
  Sex: Male

DRUGS (1)
  1. FUZEON [Suspect]
     Indication: HIV INFECTION
     Dosage: 90 MG/ML SUBCUTANEOUS
     Route: 058

REACTIONS (2)
  - ADVERSE EVENT [None]
  - CENTRAL NERVOUS SYSTEM LYMPHOMA [None]
